FAERS Safety Report 7925144-9 (Version None)
Quarter: 2011Q4

REPORT INFORMATION
  Report Type: 
  Country: None (occurrence: None)
  Receive Date: 20111118
  Receipt Date: 20111114
  Transmission Date: 20120403
  Serious: Yes (Other)
  Sender: FDA-Public Use
  Company Number: US-ROCHE-1013949

PATIENT

DRUGS (4)
  1. AVASTIN [Suspect]
     Indication: FIBROMA
  2. TEMOZOLOMIDE [Suspect]
     Indication: FIBROMA
  3. AVASTIN [Suspect]
     Indication: HAEMANGIOPERICYTOMA
     Route: 042
  4. TEMOZOLOMIDE [Suspect]
     Indication: HAEMANGIOPERICYTOMA

REACTIONS (2)
  - LUNG INFILTRATION [None]
  - FUNGAL INFECTION [None]
